FAERS Safety Report 16101136 (Version 1)
Quarter: 2019Q1

REPORT INFORMATION
  Report Type: Report from Study
  Country: US (occurrence: US)
  Receive Date: 20190321
  Receipt Date: 20190321
  Transmission Date: 20190418
  Serious: Yes (Hospitalization)
  Sender: FDA-Public Use
  Company Number: US-ACTELION-A-NJ2019-186592

PATIENT
  Age: 78 Year
  Sex: Male

DRUGS (2)
  1. OPSUMIT [Suspect]
     Active Substance: MACITENTAN
     Indication: TYPE V HYPERLIPIDAEMIA
  2. OPSUMIT [Suspect]
     Active Substance: MACITENTAN
     Indication: PULMONARY FIBROSIS
     Dosage: 10 MG, QD
     Route: 048
     Dates: start: 20190125, end: 20190214

REACTIONS (7)
  - Somnolence [Unknown]
  - Liver disorder [Unknown]
  - Liver function test abnormal [Unknown]
  - Condition aggravated [Unknown]
  - Fatigue [Unknown]
  - Renal disorder [Unknown]
  - Anaemia [Unknown]

NARRATIVE: CASE EVENT DATE: 201902
